FAERS Safety Report 9591055 (Version 1)
Quarter: 2013Q4

REPORT INFORMATION
  Report Type: Spontaneous
  Country: US (occurrence: US)
  Receive Date: 20131003
  Receipt Date: 20131003
  Transmission Date: 20140711
  Serious: No
  Sender: FDA-Public Use
  Company Number: US-AMGEN-USASP2012079198

PATIENT
  Sex: Female

DRUGS (5)
  1. ENBREL [Suspect]
     Indication: RHEUMATOID ARTHRITIS
     Dosage: 50 MG/ML, QWK
     Route: 058
  2. SYNTHROID [Concomitant]
     Dosage: 25 MUG, UNK
  3. PREDNISONE [Concomitant]
     Dosage: 1 MG, UNK
  4. FOLIC ACID [Concomitant]
     Dosage: 1 MG, UNK
  5. VITAMIN D                          /00107901/ [Concomitant]
     Dosage: 1000 UNIT

REACTIONS (3)
  - Rash [Unknown]
  - Injection site erythema [Unknown]
  - Injection site swelling [Unknown]
